FAERS Safety Report 6959451-3 (Version None)
Quarter: 2010Q3

REPORT INFORMATION
  Report Type: 
  Country: None (occurrence: None)
  Receive Date: 20100827
  Receipt Date: 20100816
  Transmission Date: 20110219
  Serious: No
  Sender: FDA-Public Use
  Company Number: 017378

PATIENT
  Age: 90 Year
  Sex: Male

DRUGS (1)
  1. KEPPRA [Suspect]
     Dosage: (500 MG BID)
     Dates: start: 20100813

REACTIONS (3)
  - DROOLING [None]
  - DYSARTHRIA [None]
  - MUSCULOSKELETAL DISORDER [None]
